FAERS Safety Report 9431863 (Version 3)
Quarter: 2013Q3

REPORT INFORMATION
  Report Type: Report from Study
  Country: CL (occurrence: CL)
  Receive Date: 20130731
  Receipt Date: 20130902
  Transmission Date: 20140515
  Serious: Yes (Other)
  Sender: FDA-Public Use
  Company Number: PHHY2013CL080133

PATIENT
  Age: 47 Year
  Sex: Female

DRUGS (2)
  1. LEPONEX [Suspect]
     Indication: SCHIZOPHRENIA
     Dosage: 800 MG, QD
     Route: 048
     Dates: start: 1996
  2. LORAZEPAM [Concomitant]
     Dosage: 2 MG, UNK
     Route: 048

REACTIONS (4)
  - Skin cancer [Recovered/Resolved]
  - Pain [Unknown]
  - Cough [Recovered/Resolved]
  - Pain in extremity [Recovering/Resolving]
